FAERS Safety Report 9201444 (Version 1)
Quarter: 2013Q2

REPORT INFORMATION
  Report Type: Spontaneous
  Country: FR (occurrence: FR)
  Receive Date: 20130401
  Receipt Date: 20130401
  Transmission Date: 20140414
  Serious: Yes (Hospitalization)
  Sender: FDA-Public Use
  Company Number: US-UCBSA-081881

PATIENT
  Age: 8 Year
  Sex: Male
  Weight: 22.4 kg

DRUGS (2)
  1. QUASYM [Suspect]
     Indication: ATTENTION DEFICIT/HYPERACTIVITY DISORDER
     Route: 048
     Dates: start: 20110730, end: 201108
  2. QUASYM [Suspect]
     Indication: ATTENTION DEFICIT/HYPERACTIVITY DISORDER
     Dosage: UNKNOWN DOSE
     Dates: start: 20110618, end: 2011

REACTIONS (2)
  - Abdominal rigidity [Unknown]
  - Abdominal pain upper [Unknown]
